FAERS Safety Report 10029834 (Version 1)
Quarter: 2014Q1

REPORT INFORMATION
  Report Type: Spontaneous
  Country: US (occurrence: None)
  Receive Date: 20140320
  Receipt Date: 20140320
  Transmission Date: 20141002
  Serious: Yes (Other)
  Sender: FDA-Public Use
  Company Number: 2014-014034

PATIENT
  Age: 4 Year
  Sex: Female

DRUGS (1)
  1. UP + UP CHILDREN^S MUCUS RELIEF + COUGH [Suspect]
     Dosage: ONE DOSE GIVEN
     Dates: start: 20140224

REACTIONS (3)
  - Convulsion [None]
  - Vomiting [None]
  - Malaise [None]
